FAERS Safety Report 9290521 (Version 1)
Quarter: 2013Q2

REPORT INFORMATION
  Report Type: Spontaneous
  Country: US (occurrence: US)
  Receive Date: 20130514
  Receipt Date: 20130514
  Transmission Date: 20140414
  Serious: Yes (Other)
  Sender: FDA-Public Use
  Company Number: US-BRACCO-008271

PATIENT
  Age: 38 Year
  Sex: Female
  Weight: 100 kg

DRUGS (2)
  1. PROHANCE [Suspect]
     Indication: RENAL SCAN
     Route: 042
     Dates: start: 20120710, end: 20120710
  2. PROHANCE [Suspect]
     Indication: ANGIOMYOLIPOMA
     Route: 042
     Dates: start: 20120710, end: 20120710

REACTIONS (5)
  - Oedema mouth [Unknown]
  - Paraesthesia oral [Unknown]
  - Hypoaesthesia oral [Unknown]
  - Nasal congestion [Unknown]
  - Sneezing [Unknown]
